FAERS Safety Report 9648749 (Version 1)
Quarter: 2013Q4

REPORT INFORMATION
  Report Type: Spontaneous
  Country: US (occurrence: US)
  Receive Date: 20131028
  Receipt Date: 20131028
  Transmission Date: 20140711
  Serious: No
  Sender: FDA-Public Use
  Company Number: US-PFIZER INC-2013305987

PATIENT
  Age: 58 Year
  Sex: Female
  Weight: 83.9 kg

DRUGS (3)
  1. PREMARIN [Suspect]
     Indication: MENOPAUSAL SYMPTOMS
     Dosage: 0.65 MG, 1X/DAY
     Dates: start: 20130924, end: 2013
  2. ESTRACE [Concomitant]
     Indication: ATROPHIC VULVOVAGINITIS
     Dosage: 0.1 MG, UNK
  3. MACROBID [Concomitant]
     Indication: URINARY TRACT INFECTION
     Dosage: 100 MG, UNK

REACTIONS (1)
  - Discomfort [Unknown]
